FAERS Safety Report 9043486 (Version 1)
Quarter: 2013Q1

REPORT INFORMATION
  Report Type: Report from Study
  Country: US (occurrence: US)
  Receive Date: 20130129
  Receipt Date: 20130129
  Transmission Date: 20140127
  Serious: No
  Sender: FDA-Public Use
  Company Number: US-ABBOTT-12P-163-0909688-00

PATIENT
  Age: 60 Year
  Sex: Male

DRUGS (9)
  1. HUMIRA 40 MG/0.8 ML PEN [Suspect]
     Indication: CROHN^S DISEASE
     Dosage: INITIAL DOSE-160MG
     Dates: start: 20120222, end: 20120222
  2. HUMIRA 40 MG/0.8 ML PEN [Suspect]
  3. 6-MP [Concomitant]
     Indication: CROHN^S DISEASE
     Dosage: 100 MG DAILY
  4. PLAVIX [Concomitant]
     Indication: THROMBOSIS PROPHYLAXIS
     Dosage: 75 MG DAILY
  5. LOMOTINE [Concomitant]
     Indication: CONVULSION PROPHYLAXIS
     Dosage: 500 MG DAILY WITH CLONAZEPAM
  6. CLONAZEPAM [Concomitant]
     Indication: CONVULSION PROPHYLAXIS
     Dosage: 2 MG DAILY WITH LOMOTINE
  7. PRAVASTATIN [Concomitant]
     Indication: BLOOD CHOLESTEROL INCREASED
     Dosage: AT BEDTIME
  8. MULTIVITAMIN D [Concomitant]
     Indication: VITAMIN SUPPLEMENTATION
  9. TYLENOL [Concomitant]
     Indication: HEADACHE
     Dosage: OVER THE COUNTER

REACTIONS (3)
  - Gastrointestinal sounds abnormal [Not Recovered/Not Resolved]
  - Abdominal pain [Not Recovered/Not Resolved]
  - Weight decreased [Unknown]
